FAERS Safety Report 22336445 (Version 1)
Quarter: 2023Q2

REPORT INFORMATION
  Report Type: Spontaneous
  Country: US (occurrence: None)
  Receive Date: 20230518
  Receipt Date: 20230518
  Transmission Date: 20230721
  Serious: No
  Sender: FDA-Public Use
  Company Number: US-ROCHE-3187884

PATIENT
  Age: 63 Year
  Sex: Male
  Weight: 74.91 kg

DRUGS (6)
  1. ACTEMRA [Suspect]
     Active Substance: TOCILIZUMAB
     Indication: Giant cell arteritis
     Dosage: OTHER
     Route: 058
     Dates: start: 202208
  2. ACTEMRA [Suspect]
     Active Substance: TOCILIZUMAB
  3. ACTEMRA [Suspect]
     Active Substance: TOCILIZUMAB
     Indication: Uveitis
  4. ACTEMRA [Suspect]
     Active Substance: TOCILIZUMAB
  5. ACTEMRA [Suspect]
     Active Substance: TOCILIZUMAB
     Indication: Retinal oedema
  6. ACTEMRA [Suspect]
     Active Substance: TOCILIZUMAB

REACTIONS (6)
  - Product dose omission issue [Unknown]
  - Product storage error [Unknown]
  - Keratitis [Not Recovered/Not Resolved]
  - Needle issue [Unknown]
  - Device physical property issue [Unknown]
  - Device leakage [Unknown]

NARRATIVE: CASE EVENT DATE: 20220916
